FAERS Safety Report 12208053 (Version 2)
Quarter: 2016Q2

REPORT INFORMATION
  Report Type: Report from Study
  Country: None (occurrence: BE)
  Receive Date: 20160324
  Receipt Date: 20160404
  Transmission Date: 20160815
  Serious: Yes (Hospitalization, Other)
  Sender: FDA-Public Use
  Company Number: BE-BIOVITRUM-2016BE0186

PATIENT
  Age: 16 Year
  Sex: Male
  Weight: 56.7 kg

DRUGS (5)
  1. ORFADIN [Suspect]
     Active Substance: NITISINONE
     Dates: start: 20150416
  2. ORFADIN [Suspect]
     Active Substance: NITISINONE
     Indication: TYROSINAEMIA
     Dates: start: 19980605
  3. ORFADIN [Suspect]
     Active Substance: NITISINONE
     Dates: start: 20090804
  4. ORFADIN [Suspect]
     Active Substance: NITISINONE
  5. ORFADIN [Suspect]
     Active Substance: NITISINONE
     Dates: start: 20111221, end: 20150416

REACTIONS (2)
  - Porphyria acute [Unknown]
  - Treatment noncompliance [Unknown]

NARRATIVE: CASE EVENT DATE: 201506
